FAERS Safety Report 10835041 (Version 1)
Quarter: 2015Q1

REPORT INFORMATION
  Report Type: Report from Study
  Country: US (occurrence: US)
  Receive Date: 20150219
  Receipt Date: 20150219
  Transmission Date: 20150721
  Serious: No
  Sender: FDA-Public Use
  Company Number: US-ABBVIE-14P-163-1206066-00

PATIENT
  Age: 49 Year
  Sex: Female

DRUGS (22)
  1. CARISOPRODOL. [Concomitant]
     Active Substance: CARISOPRODOL
     Indication: MUSCLE RELAXANT THERAPY
  2. PRAMIPEXOLE [Concomitant]
     Active Substance: PRAMIPEXOLE
     Indication: RESTLESS LEGS SYNDROME
     Dosage: 2 AT BEDTIME
  3. VITAMIN D3 [Concomitant]
     Active Substance: CHOLECALCIFEROL
     Indication: VITAMIN D DECREASED
  4. LEVOTHYROXINE [Concomitant]
     Active Substance: LEVOTHYROXINE
     Indication: THYROID FUNCTION TEST ABNORMAL
  5. METHOTREXATE [Concomitant]
     Active Substance: METHOTREXATE
     Indication: PSORIATIC ARTHROPATHY
  6. FOLIC ACID. [Concomitant]
     Active Substance: FOLIC ACID
     Indication: VITAMIN SUPPLEMENTATION
  7. MULTIVITAMINS [Concomitant]
     Active Substance: VITAMINS
     Indication: VITAMIN SUPPLEMENTATION
  8. FINACEA [Concomitant]
     Active Substance: AZELAIC ACID
     Indication: ROSACEA
  9. HUMIRA [Suspect]
     Active Substance: ADALIMUMAB
     Indication: PSORIATIC ARTHROPATHY
     Dates: start: 20140127
  10. DULOXETINE [Concomitant]
     Active Substance: DULOXETINE
     Indication: DEPRESSION
  11. PORTIA [Concomitant]
     Active Substance: ETHINYL ESTRADIOL\LEVONORGESTREL
     Indication: CONTRACEPTION
  12. CALCIUM CITRATE [Concomitant]
     Active Substance: CALCIUM CITRATE
     Indication: MINERAL SUPPLEMENTATION
  13. CLONAZEPAM. [Concomitant]
     Active Substance: CLONAZEPAM
     Indication: RESTLESS LEGS SYNDROME
     Dosage: AT BEDTIME
  14. SPIRONOLACTONE. [Concomitant]
     Active Substance: SPIRONOLACTONE
     Indication: BLOOD POTASSIUM ABNORMAL
  15. CLOBETASOL 0.05% [Concomitant]
     Indication: PSORIASIS
  16. OMEPRAZOLE. [Concomitant]
     Active Substance: OMEPRAZOLE
     Indication: GASTROOESOPHAGEAL REFLUX DISEASE
  17. TRAMADOL [Suspect]
     Active Substance: TRAMADOL
     Indication: PAIN
     Dates: start: 201402
  18. TOPIRAMATE. [Concomitant]
     Active Substance: TOPIRAMATE
     Indication: MOOD SWINGS
     Dosage: AT BEDTIME
  19. DULOXETINE [Concomitant]
     Active Substance: DULOXETINE
     Indication: PAIN
  20. BACLOFEN. [Concomitant]
     Active Substance: BACLOFEN
     Indication: MUSCLE SPASMS
     Dosage: ONE TWO TIMES DAILY
  21. CLOBETASOL 0.05% [Concomitant]
     Indication: ECZEMA
  22. KETOROLAC [Concomitant]
     Active Substance: KETOROLAC\KETOROLAC TROMETHAMINE
     Indication: PAIN

REACTIONS (10)
  - Injection site pruritus [Not Recovered/Not Resolved]
  - Injection site pruritus [Not Recovered/Not Resolved]
  - Road traffic accident [Unknown]
  - Dyspnoea [Unknown]
  - Injection site erythema [Not Recovered/Not Resolved]
  - Pain [Not Recovered/Not Resolved]
  - Nausea [Not Recovered/Not Resolved]
  - Muscle strain [Not Recovered/Not Resolved]
  - Drug ineffective [Not Recovered/Not Resolved]
  - Injection site erythema [Not Recovered/Not Resolved]

NARRATIVE: CASE EVENT DATE: 20140127
